FAERS Safety Report 12356111 (Version 2)
Quarter: 2016Q2

REPORT INFORMATION
  Report Type: Other
  Country: IT (occurrence: IT)
  Receive Date: 20160511
  Receipt Date: 20160520
  Transmission Date: 20160815
  Serious: Yes (Other)
  Sender: FDA-Public Use
  Company Number: IT-MYLANLABS-2016M1018829

PATIENT

DRUGS (5)
  1. EUTIROX [Suspect]
     Active Substance: LEVOTHYROXINE SODIUM
     Indication: AUTOIMMUNE THYROIDITIS
     Dosage: 50 ?G, QD
  2. PANTORC [Suspect]
     Active Substance: PANTOPRAZOLE SODIUM
     Indication: PRODUCT USED FOR UNKNOWN INDICATION
     Dosage: 50 MG, QD
  3. BISOPROLOL [Suspect]
     Active Substance: BISOPROLOL
     Indication: VENTRICULAR EXTRASYSTOLES
     Dosage: 1.25 MG, UNK
  4. GAVISCON                           /01405501/ [Suspect]
     Active Substance: SODIUM ALGINATE\SODIUM BICARBONATE
     Indication: PRODUCT USED FOR UNKNOWN INDICATION
     Dosage: UNK, QD
  5. XANAX [Suspect]
     Active Substance: ALPRAZOLAM
     Indication: ANXIETY
     Dosage: 0.5 DF, QD

REACTIONS (9)
  - Dysentery [Unknown]
  - Salivary hypersecretion [Unknown]
  - Helicobacter test positive [Unknown]
  - Anaemia [Unknown]
  - Gastrointestinal inflammation [Unknown]
  - Dysgeusia [Unknown]
  - Dyspepsia [Unknown]
  - Influenza [Unknown]
  - Dizziness [Unknown]
